FAERS Safety Report 14579309 (Version 3)
Quarter: 2018Q2

REPORT INFORMATION
  Report Type: Report from Study
  Country: ES (occurrence: ES)
  Receive Date: 20180227
  Receipt Date: 20180515
  Transmission Date: 20180711
  Serious: Yes (Death, Hospitalization, Other)
  Sender: FDA-Public Use
  Company Number: ES-BRISTOL-MYERS SQUIBB COMPANY-BMS-2018-015037

PATIENT
  Age: 61 Year
  Sex: Male
  Weight: 92 kg

DRUGS (3)
  1. NIVOLUMAB [Suspect]
     Active Substance: NIVOLUMAB
     Indication: NON-SMALL CELL LUNG CANCER
     Dosage: 480 MG, Q4WK
     Route: 042
     Dates: start: 20170928, end: 20180215
  2. BMS-986205-04 [Suspect]
     Active Substance: INVESTIGATIONAL PRODUCT
     Indication: NON-SMALL CELL LUNG CANCER
     Dosage: 100 MG, UNK
     Route: 048
     Dates: start: 20170928, end: 20180215
  3. CORTICOSTEROID NOS [Concomitant]
     Active Substance: CORTICOSTEROID NOS
     Indication: PRODUCT USED FOR UNKNOWN INDICATION
     Route: 065

REACTIONS (1)
  - Hepatic failure [Fatal]

NARRATIVE: CASE EVENT DATE: 20180215
